FAERS Safety Report 6937515-8 (Version None)
Quarter: 2010Q3

REPORT INFORMATION
  Report Type: 
  Country: None (occurrence: None)
  Receive Date: 20100823
  Receipt Date: 20100804
  Transmission Date: 20110219
  Serious: Yes (Other)
  Sender: FDA-Public Use
  Company Number: PHEH2008US04553

PATIENT
  Sex: Male

DRUGS (31)
  1. AREDIA [Suspect]
     Dosage: UNK MG, UNK
     Dates: start: 20020206
  2. ZOMETA [Suspect]
     Indication: MULTIPLE MYELOMA
     Dosage: 4 MG, QMO
     Route: 042
     Dates: start: 20020101, end: 20060601
  3. THALIDOMIDE [Concomitant]
     Dosage: UNK
     Dates: end: 20060501
  4. REVLIMID [Concomitant]
     Dosage: UNK
  5. VALPROIC ACID [Concomitant]
     Indication: SLEEP DISORDER
  6. CALCIUM [Concomitant]
  7. VITAMIN D [Concomitant]
  8. HEPARIN [Concomitant]
  9. METOPROLOL [Concomitant]
  10. PREDNISONE [Concomitant]
     Dosage: UNK
     Dates: start: 20020101, end: 20040101
  11. MELPHALAN [Concomitant]
  12. DECADRON [Concomitant]
     Dosage: UNK
     Dates: start: 20060401
  13. CHEMOTHERAPEUTICS NOS [Concomitant]
  14. PROCRIT                            /00909301/ [Concomitant]
  15. NITROGLYCERIN ^DAK^ [Concomitant]
     Route: 060
  16. LENALIDOMIDE [Concomitant]
  17. ALKERAN [Concomitant]
  18. OMEPRAZOLE [Concomitant]
  19. SIMVASTATIN [Concomitant]
  20. DEXAMETHASONE [Concomitant]
  21. ASPIRIN [Concomitant]
  22. IBUPROFEN [Concomitant]
  23. SULFAMETHOXAZOLE AND TRIMETHOPRIM [Concomitant]
  24. DOCUSATE SODIUM [Concomitant]
  25. CHLORHEXIDINE GLUCONATE [Concomitant]
  26. ALBUTEROL [Concomitant]
  27. IPRATROPIUM BROMIDE [Concomitant]
     Dosage: UNK
  28. ROSUVASTATIN [Concomitant]
  29. VARENICLINE [Concomitant]
  30. NAPROXEN [Concomitant]
  31. ACETAMINOPHEN [Concomitant]

REACTIONS (88)
  - ABDOMINAL DISCOMFORT [None]
  - ANAEMIA [None]
  - ANGER [None]
  - ANHEDONIA [None]
  - ANXIETY [None]
  - AORTIC ANEURYSM REPAIR [None]
  - ARTERIAL THERAPEUTIC PROCEDURE [None]
  - ARTERIOSCLEROSIS [None]
  - ARTHRALGIA [None]
  - AVULSION FRACTURE [None]
  - BACK PAIN [None]
  - BENIGN PROSTATIC HYPERPLASIA [None]
  - BONE DENSITY DECREASED [None]
  - BONE LESION [None]
  - BONE PAIN [None]
  - BRONCHITIS [None]
  - BURNING SENSATION [None]
  - CATARACT [None]
  - CATHETERISATION CARDIAC [None]
  - CHEST PAIN [None]
  - CHOLELITHIASIS [None]
  - CHRONIC OBSTRUCTIVE PULMONARY DISEASE [None]
  - CONTUSION [None]
  - CORONARY ANGIOPLASTY [None]
  - CRYING [None]
  - DECREASED APPETITE [None]
  - DEPRESSED MOOD [None]
  - DEPRESSION [None]
  - DERMAL CYST [None]
  - DIVERTICULUM [None]
  - DIZZINESS [None]
  - DRY SKIN [None]
  - DYSGEUSIA [None]
  - DYSPEPSIA [None]
  - DYSPNOEA [None]
  - DYSURIA [None]
  - FATIGUE [None]
  - FEELING GUILTY [None]
  - FLASHBACK [None]
  - HAEMOPTYSIS [None]
  - HEPATIC STEATOSIS [None]
  - HEPATOMEGALY [None]
  - HYPERCHOLESTEROLAEMIA [None]
  - HYPERLIPIDAEMIA [None]
  - HYPERMETROPIA [None]
  - HYPERVIGILANCE [None]
  - IMMUNOGLOBULINS DECREASED [None]
  - INJURY [None]
  - INSOMNIA [None]
  - INTERVERTEBRAL DISC DEGENERATION [None]
  - INTRAOCULAR LENS IMPLANT [None]
  - IRRITABILITY [None]
  - LEUKOPENIA [None]
  - LOOSE TOOTH [None]
  - MASS [None]
  - MULTIPLE MYELOMA [None]
  - MUSCLE SPASMS [None]
  - MUSCULOSKELETAL PAIN [None]
  - NEUROPATHY PERIPHERAL [None]
  - NIGHT SWEATS [None]
  - NIGHTMARE [None]
  - OSTEOARTHRITIS [None]
  - OSTEONECROSIS OF JAW [None]
  - OSTEOPENIA [None]
  - OSTEOPOROSIS [None]
  - OVERWEIGHT [None]
  - PHYSICAL DISABILITY [None]
  - PLASMACYTOSIS [None]
  - PNEUMONIA PNEUMOCOCCAL [None]
  - POLLAKIURIA [None]
  - PRODUCTIVE COUGH [None]
  - SCAR [None]
  - SOCIAL AVOIDANT BEHAVIOUR [None]
  - SPINAL OSTEOARTHRITIS [None]
  - SPUTUM DISCOLOURED [None]
  - STENT PLACEMENT [None]
  - STREPTOCOCCAL BACTERAEMIA [None]
  - SWELLING [None]
  - THROMBOCYTOPENIA [None]
  - TOOTH ABSCESS [None]
  - TOOTH EXTRACTION [None]
  - TOOTH LOSS [None]
  - TOOTHACHE [None]
  - UPPER RESPIRATORY TRACT INFECTION [None]
  - URINARY HESITATION [None]
  - URINARY RETENTION [None]
  - URINARY TRACT INFECTION [None]
  - WEIGHT DECREASED [None]
